FAERS Safety Report 25253745 (Version 1)
Quarter: 2025Q2

REPORT INFORMATION
  Report Type: Spontaneous
  Country: US (occurrence: US)
  Receive Date: 20250430
  Receipt Date: 20250430
  Transmission Date: 20250717
  Serious: Yes (Hospitalization)
  Sender: ROCHE
  Company Number: US-ROCHE-10000268259

PATIENT
  Sex: Female

DRUGS (3)
  1. ITOVEBI [Suspect]
     Active Substance: INAVOLISIB
     Indication: Breast cancer metastatic
     Route: 065
  2. ITOVEBI [Suspect]
     Active Substance: INAVOLISIB
     Route: 065
  3. ITOVEBI [Suspect]
     Active Substance: INAVOLISIB
     Route: 065

REACTIONS (6)
  - Blood glucose increased [Unknown]
  - Blood potassium increased [Unknown]
  - Dehydration [Unknown]
  - Renal failure [Unknown]
  - Off label use [Unknown]
  - Blood glucose increased [Unknown]
